FAERS Safety Report 5636163-X (Version None)
Quarter: 2008Q1

REPORT INFORMATION
  Report Type: 
  Country: None (occurrence: None)
  Receive Date: 20080225
  Receipt Date: 20080218
  Transmission Date: 20080703
  Serious: Yes (Other)
  Sender: FDA-Public Use
  Company Number: GB-WYE-G01082708

PATIENT
  Sex: Female

DRUGS (4)
  1. EFFEXOR XR [Suspect]
     Route: 048
     Dates: start: 20070501
  2. DIAZEPAM [Concomitant]
     Dosage: UNKNOWN
  3. PROMAZINE HYDROCHLORIDE [Concomitant]
     Dosage: UNKNOWN
  4. ZOPICLONE [Concomitant]
     Dosage: UNKNOWN

REACTIONS (1)
  - METASTATIC NEOPLASM [None]
